FAERS Safety Report 7764015-8 (Version None)
Quarter: 2011Q3

REPORT INFORMATION
  Report Type: 
  Country: None (occurrence: None)
  Receive Date: 20110921
  Receipt Date: 20110919
  Transmission Date: 20111222
  Serious: Yes (Other)
  Sender: FDA-Public Use
  Company Number: US-PFIZER INC-2011221973

PATIENT
  Sex: Male

DRUGS (7)
  1. KETOROLAC [Concomitant]
     Dosage: UNK
  2. OXYCONTIN [Concomitant]
     Dosage: UNK
  3. METHOCARBAMOL [Concomitant]
     Dosage: UNK
  4. GABAPENTIN [Concomitant]
     Dosage: UNK
  5. TERAZOSIN [Concomitant]
     Dosage: UNK
  6. CHANTIX [Suspect]
     Indication: SMOKING CESSATION THERAPY
     Dosage: 0.5 MG, 1X/DAY
     Route: 048
     Dates: start: 20110801
  7. CHANTIX [Suspect]
     Dosage: 1 MG, UNK
     Route: 048

REACTIONS (4)
  - SUICIDAL IDEATION [None]
  - ABNORMAL DREAMS [None]
  - THINKING ABNORMAL [None]
  - FEELING ABNORMAL [None]
